FAERS Safety Report 8586330-0 (Version None)
Quarter: 2012Q3

REPORT INFORMATION
  Report Type: 
  Country: None (occurrence: None)
  Receive Date: 20120810
  Receipt Date: 19910514
  Transmission Date: 20120928
  Serious: Yes (Hospitalization)
  Sender: FDA-Public Use
  Company Number: US-ROCHE-1098802

PATIENT
  Age: 49 Year
  Sex: Male

DRUGS (4)
  1. NITROGLYCERIN [Concomitant]
     Route: 042
  2. NITROGLYCERIN [Concomitant]
     Dosage: DECREASED
  3. ACTIVASE [Suspect]
     Indication: ACUTE MYOCARDIAL INFARCTION
     Route: 042
  4. MORPHINE [Concomitant]
     Route: 042

REACTIONS (3)
  - VENTRICULAR EXTRASYSTOLES [None]
  - BLOOD PRESSURE DECREASED [None]
  - RHYTHM IDIOVENTRICULAR [None]
